FAERS Safety Report 17339509 (Version 1)
Quarter: 2020Q1

REPORT INFORMATION
  Report Type: Spontaneous
  Country: US (occurrence: US)
  Receive Date: 20200114
  Receipt Date: 20200114
  Transmission Date: 20200409
  Serious: No
  Sender: FDA-Public Use
  Company Number: None

PATIENT
  Age: 32 Year
  Sex: Female

DRUGS (2)
  1. IMITREX [Concomitant]
     Active Substance: SUMATRIPTAN SUCCINATE
  2. IMATINIB 400MG  TAB (X30) [Suspect]
     Active Substance: IMATINIB
     Route: 048
     Dates: start: 20180101

REACTIONS (2)
  - Migraine [None]
  - Peripheral swelling [None]

NARRATIVE: CASE EVENT DATE: 20190101
